FAERS Safety Report 4876256-8 (Version None)
Quarter: 2006Q1

REPORT INFORMATION
  Report Type: 
  Country: None (occurrence: None)
  Receive Date: 20060106
  Receipt Date: 20051221
  Transmission Date: 20060701
  Serious: Yes (Other)
  Sender: FDA-Public Use
  Company Number: 05-0168PO

PATIENT
  Sex: Female

DRUGS (1)
  1. PONSTEL [Suspect]
     Indication: ILL-DEFINED DISORDER
     Dosage: ORAL
     Route: 048

REACTIONS (4)
  - FEELING ABNORMAL [None]
  - INTENTIONAL DRUG MISUSE [None]
  - OVERDOSE [None]
  - VOMITING [None]
